FAERS Safety Report 21188894 (Version 3)
Quarter: 2022Q3

REPORT INFORMATION
  Report Type: Report from Study
  Country: US (occurrence: US)
  Receive Date: 20220809
  Receipt Date: 20220929
  Transmission Date: 20221027
  Serious: Yes (Hospitalization, Other)
  Sender: FDA-Public Use
  Company Number: US-TAKEDA-2022TUS021168

PATIENT
  Sex: Female

DRUGS (12)
  1. TEDUGLUTIDE [Suspect]
     Active Substance: TEDUGLUTIDE
     Indication: Short-bowel syndrome
     Dosage: 2.65 MILLIGRAM, QD
     Route: 058
     Dates: start: 202202
  2. TEDUGLUTIDE [Suspect]
     Active Substance: TEDUGLUTIDE
     Indication: Short-bowel syndrome
     Dosage: 2.65 MILLIGRAM, QD
     Route: 058
     Dates: start: 202202
  3. TEDUGLUTIDE [Suspect]
     Active Substance: TEDUGLUTIDE
     Indication: Short-bowel syndrome
     Dosage: 2.65 MILLIGRAM, QD
     Route: 058
     Dates: start: 202202
  4. TEDUGLUTIDE [Suspect]
     Active Substance: TEDUGLUTIDE
     Indication: Short-bowel syndrome
     Dosage: 2.65 MILLIGRAM, QD
     Route: 058
     Dates: start: 202202
  5. TEDUGLUTIDE [Suspect]
     Active Substance: TEDUGLUTIDE
     Dosage: 2.65 MILLIGRAM, QD
     Route: 058
     Dates: start: 20220302
  6. TEDUGLUTIDE [Suspect]
     Active Substance: TEDUGLUTIDE
     Dosage: 2.65 MILLIGRAM, QD
     Route: 058
     Dates: start: 20220302
  7. TEDUGLUTIDE [Suspect]
     Active Substance: TEDUGLUTIDE
     Dosage: 2.65 MILLIGRAM, QD
     Route: 058
     Dates: start: 20220302
  8. TEDUGLUTIDE [Suspect]
     Active Substance: TEDUGLUTIDE
     Dosage: 2.65 MILLIGRAM, QD
     Route: 058
     Dates: start: 20220302
  9. TEDUGLUTIDE [Suspect]
     Active Substance: TEDUGLUTIDE
     Dosage: 2.65 MILLIGRAM, QD
     Route: 058
     Dates: start: 20220305
  10. TEDUGLUTIDE [Suspect]
     Active Substance: TEDUGLUTIDE
     Dosage: 2.65 MILLIGRAM, QD
     Route: 058
     Dates: start: 20220305
  11. TEDUGLUTIDE [Suspect]
     Active Substance: TEDUGLUTIDE
     Dosage: 2.65 MILLIGRAM, QD
     Route: 058
     Dates: start: 20220305
  12. TEDUGLUTIDE [Suspect]
     Active Substance: TEDUGLUTIDE
     Dosage: 2.65 MILLIGRAM, QD
     Route: 058
     Dates: start: 20220305

REACTIONS (14)
  - Device related sepsis [Unknown]
  - Drug ineffective [Unknown]
  - Urine output decreased [Unknown]
  - Muscle spasms [Unknown]
  - Haemoglobin decreased [Unknown]
  - Blood creatinine increased [Unknown]
  - Vitamin B12 decreased [Unknown]
  - Abdominal discomfort [Unknown]
  - Abdominal pain [Unknown]
  - Abdominal distension [Unknown]
  - Decreased appetite [Unknown]
  - Nausea [Unknown]
  - Abdominal pain upper [Unknown]
  - Product dose omission issue [Unknown]
